FAERS Safety Report 24684365 (Version 1)
Quarter: 2024Q4

REPORT INFORMATION
  Report Type: Spontaneous
  Country: ES (occurrence: ES)
  Receive Date: 20241202
  Receipt Date: 20241202
  Transmission Date: 20250115
  Serious: Yes (Other)
  Sender: AUROBINDO
  Company Number: ES-AEMPS-1595411

PATIENT
  Age: 72 Year
  Sex: Female

DRUGS (3)
  1. MEROPENEM [Suspect]
     Active Substance: MEROPENEM
     Indication: Hip surgery
     Dosage: 2 GRAM, 3 TIMES A DAY
     Route: 042
     Dates: start: 20241007, end: 20241015
  2. TEICOPLANIN [Suspect]
     Active Substance: TEICOPLANIN
     Indication: Hip surgery
     Dosage: 800 MILLIGRAM
     Route: 042
     Dates: start: 20241007, end: 20241015
  3. ENOXAPARIN [Suspect]
     Active Substance: ENOXAPARIN
     Indication: Thrombosis prophylaxis
     Dosage: 60 MILLIGRAM
     Route: 058
     Dates: start: 20240928

REACTIONS (1)
  - Eosinophilia [Recovering/Resolving]

NARRATIVE: CASE EVENT DATE: 20241009
